FAERS Safety Report 7225839-9 (Version None)
Quarter: 2011Q1

REPORT INFORMATION
  Report Type: 
  Country: None (occurrence: None)
  Receive Date: 20110107
  Receipt Date: 20110107
  Transmission Date: 20110831
  Serious: Yes (Death)
  Sender: FDA-Public Use
  Company Number: None

PATIENT
  Age: 64 Year
  Sex: Male

DRUGS (2)
  1. TEMADOR  140MG  SCHERING [Suspect]
  2. SPRYCEL [Suspect]

REACTIONS (1)
  - DEATH [None]
